FAERS Safety Report 6047787-2 (Version None)
Quarter: 2009Q1

REPORT INFORMATION
  Report Type: 
  Country: None (occurrence: None)
  Receive Date: 20090123
  Receipt Date: 20090113
  Transmission Date: 20090719
  Serious: Yes (Other)
  Sender: FDA-Public Use
  Company Number: US-AMGEN-QUU328359

PATIENT
  Sex: Male

DRUGS (1)
  1. ENBREL [Suspect]
     Indication: ANKYLOSING SPONDYLITIS
     Route: 058
     Dates: start: 20060411

REACTIONS (4)
  - CARDIOMEGALY [None]
  - LOCALISED INTRAABDOMINAL FLUID COLLECTION [None]
  - NEPHROLITHIASIS [None]
  - OESOPHAGEAL OEDEMA [None]
